FAERS Safety Report 7083387-3 (Version None)
Quarter: 2010Q4

REPORT INFORMATION
  Report Type: 
  Country: None (occurrence: None)
  Receive Date: 20101104
  Receipt Date: 20101102
  Transmission Date: 20110411
  Serious: Yes (Hospitalization)
  Sender: FDA-Public Use
  Company Number: A0743365A

PATIENT
  Age: 64 Year
  Sex: Male
  Weight: 102.7 kg

DRUGS (3)
  1. AVANDIA [Suspect]
     Dosage: 4MG PER DAY
     Route: 048
     Dates: start: 20030416, end: 20071204
  2. PREDNISONE [Concomitant]
     Dates: start: 20040421
  3. ADVAIR DISKUS 100/50 [Concomitant]

REACTIONS (1)
  - MYOCARDIAL INFARCTION [None]
